FAERS Safety Report 18778173 (Version 1)
Quarter: 2021Q1

REPORT INFORMATION
  Report Type: Spontaneous
  Country: FR (occurrence: FR)
  Receive Date: 20210123
  Receipt Date: 20210123
  Transmission Date: 20210419
  Serious: Yes (Death)
  Sender: FDA-Public Use
  Company Number: FR-ACCORD-215228

PATIENT
  Age: 71 Year
  Sex: Male
  Weight: 78 kg

DRUGS (8)
  1. LOVENOX [Suspect]
     Active Substance: ENOXAPARIN SODIUM
     Indication: THROMBOSIS PROPHYLAXIS
     Route: 058
     Dates: start: 20201105, end: 20201113
  2. PANTOPRAZOLE [Suspect]
     Active Substance: PANTOPRAZOLE
     Indication: PRODUCT USED FOR UNKNOWN INDICATION
     Route: 042
     Dates: start: 20201105, end: 20201126
  3. BISOPROLOL [Suspect]
     Active Substance: BISOPROLOL
     Indication: PRODUCT USED FOR UNKNOWN INDICATION
     Route: 048
     Dates: start: 2016, end: 20201113
  4. CEFOTAXIME [Suspect]
     Active Substance: CEFOTAXIME SODIUM
     Indication: ANTIBIOTIC PROPHYLAXIS
     Route: 042
     Dates: start: 20201105, end: 20201113
  5. LEVOFLOXACIN ARROW [Suspect]
     Active Substance: LEVOFLOXACIN
     Indication: ANTIBIOTIC PROPHYLAXIS
     Dosage: STRENGTH: 500 MG, SCORED FILM?COATED TABLET
     Route: 048
     Dates: start: 20201105, end: 20201113
  6. ASPIRIN PROTECT [Suspect]
     Active Substance: ASPIRIN
     Indication: THROMBOSIS PROPHYLAXIS
     Dosage: STRENGTH: 100 MG
     Route: 048
     Dates: start: 2016, end: 20201113
  7. ATORVASTATIN/ATORVASTATIN CALCIUM [Suspect]
     Active Substance: ATORVASTATIN CALCIUM
     Indication: DYSLIPIDAEMIA
     Route: 048
     Dates: start: 2016, end: 20201113
  8. DEXAMETHASONE MYLAN [Suspect]
     Active Substance: DEXAMETHASONE
     Indication: PRODUCT USED FOR UNKNOWN INDICATION
     Dosage: STRENGTH: 4 MG / 1 ML
     Route: 042
     Dates: start: 20201105, end: 20201113

REACTIONS (3)
  - Multiple organ dysfunction syndrome [Fatal]
  - Shock haemorrhagic [Fatal]
  - Haematoma muscle [Fatal]

NARRATIVE: CASE EVENT DATE: 20201113
